FAERS Safety Report 6171823-6 (Version None)
Quarter: 2009Q2

REPORT INFORMATION
  Report Type: 
  Country: None (occurrence: None)
  Receive Date: 20090428
  Receipt Date: 20090428
  Transmission Date: 20091009
  Serious: Yes (Death)
  Sender: FDA-Public Use
  Company Number: None

PATIENT
  Sex: Female
  Weight: 48.172 kg

DRUGS (1)
  1. PHOTOFRIN [Suspect]
     Indication: TONGUE NEOPLASM MALIGNANT STAGE UNSPECIFIED
     Dosage: 96.54MG ONCE IV BOLUS
     Route: 040
     Dates: start: 20090413, end: 20090413

REACTIONS (1)
  - CARDIO-RESPIRATORY ARREST [None]
